FAERS Safety Report 14604693 (Version 5)
Quarter: 2018Q2

REPORT INFORMATION
  Report Type: Report from Study
  Country: None (occurrence: FR)
  Receive Date: 20180306
  Receipt Date: 20180518
  Transmission Date: 20180711
  Serious: Yes (Hospitalization, Other)
  Sender: FDA-Public Use
  Company Number: FR-ABBVIE-18K-056-2276822-00

PATIENT
  Sex: Male
  Weight: 92 kg

DRUGS (1)
  1. DUODOPA [Suspect]
     Active Substance: CARBIDOPA\LEVODOPA
     Indication: PARKINSON^S DISEASE
     Dosage: 90 ML/24 HOURS
     Route: 050
     Dates: start: 20171122

REACTIONS (6)
  - Exhibitionism [Unknown]
  - Impulse-control disorder [Unknown]
  - Hypersexuality [Unknown]
  - Obsessive-compulsive disorder [Unknown]
  - Gambling [Unknown]
  - Abnormal behaviour [Not Recovered/Not Resolved]
